FAERS Safety Report 4627932-3 (Version None)
Quarter: 2005Q2

REPORT INFORMATION
  Report Type: 
  Country: None (occurrence: None)
  Receive Date: 20050401
  Receipt Date: 20050324
  Transmission Date: 20051028
  Serious: Yes (Other)
  Sender: FDA-Public Use
  Company Number: 2004-12-0223

PATIENT
  Age: 49 Year
  Sex: Female
  Weight: 65 kg

DRUGS (3)
  1. VIRAFERONPEG [Suspect]
     Indication: HEPATITIS C
     Dosage: 8 UG SUBCUTANEOUS
     Route: 058
     Dates: start: 20040116, end: 20041011
  2. REBETOL [Suspect]
     Indication: HEPATITIS C
     Dosage: 800 MG QD ORAL
     Route: 048
     Dates: start: 20040116, end: 20041011
  3. DEROTAX TABLETS [Concomitant]

REACTIONS (4)
  - ALVEOLITIS [None]
  - HYPOXIA [None]
  - LUNG INFILTRATION [None]
  - PULMONARY FIBROSIS [None]
